FAERS Safety Report 13011332 (Version 2)
Quarter: 2017Q1

REPORT INFORMATION
  Report Type: Spontaneous
  Country: IN (occurrence: IN)
  Receive Date: 20161209
  Receipt Date: 20170329
  Transmission Date: 20170428
  Serious: Yes (Other)
  Sender: FDA-Public Use
  Company Number: IN-LUPIN PHARMACEUTICALS INC.-2016-04768

PATIENT
  Age: 28 Year
  Sex: Male

DRUGS (14)
  1. RIFAMPIN. [Suspect]
     Active Substance: RIFAMPIN
     Indication: PULMONARY TUBERCULOSIS
     Dosage: UNK UNK,UNK,UNKNOWN
     Route: 065
  2. PYRAZINAMIDE. [Concomitant]
     Active Substance: PYRAZINAMIDE
     Dosage: UNK UNK,UNK,UNKNOWN
     Route: 065
  3. PYRAZINAMIDE. [Concomitant]
     Active Substance: PYRAZINAMIDE
     Dosage: UNK UNK,UNK,UNKNOWN
     Route: 065
  4. RIFAMPIN. [Suspect]
     Active Substance: RIFAMPIN
     Dosage: UNK UNK,UNK,UNKNOWN
     Route: 065
  5. ETHAMBUTOL [Concomitant]
     Active Substance: ETHAMBUTOL HYDROCHLORIDE
     Dosage: UNK UNK,UNK,UNKNOWN
     Route: 065
  6. PYRAZINAMIDE. [Concomitant]
     Active Substance: PYRAZINAMIDE
     Indication: PULMONARY TUBERCULOSIS
     Dosage: UNK UNK,UNK,UNKNOWN
     Route: 065
  7. ISONIAZID. [Concomitant]
     Active Substance: ISONIAZID
     Dosage: UNK UNK,UNK,UNKNOWN
     Route: 065
  8. ETHAMBUTOL [Concomitant]
     Active Substance: ETHAMBUTOL HYDROCHLORIDE
     Indication: PULMONARY TUBERCULOSIS
     Dosage: UNK UNK,UNK,UNKNOWN
     Route: 065
  9. ETHAMBUTOL [Concomitant]
     Active Substance: ETHAMBUTOL HYDROCHLORIDE
     Dosage: UNK UNK,UNK,UNKNOWN
     Route: 065
  10. RIFAMPIN. [Suspect]
     Active Substance: RIFAMPIN
     Dosage: UNK UNK,UNK,UNKNOWN
     Route: 065
  11. ISONIAZID. [Concomitant]
     Active Substance: ISONIAZID
     Indication: PULMONARY TUBERCULOSIS
     Dosage: UNK UNK,UNK,UNKNOWN
     Route: 065
  12. STREPTOMYCIN [Concomitant]
     Active Substance: STREPTOMYCIN\STREPTOMYCIN SULFATE
     Dosage: UNK UNK,UNK,UNKNOWN
     Route: 051
  13. ISONIAZID. [Concomitant]
     Active Substance: ISONIAZID
     Dosage: UNK UNK,UNK,UNKNOWN
     Route: 065
  14. STREPTOMYCIN [Concomitant]
     Active Substance: STREPTOMYCIN\STREPTOMYCIN SULFATE
     Indication: PULMONARY TUBERCULOSIS
     Dosage: UNK UNK,UNK,UNKNOWN
     Route: 051

REACTIONS (2)
  - Acute kidney injury [Recovered/Resolved]
  - Hepatitis [Recovered/Resolved]
